FAERS Safety Report 9590187 (Version 1)
Quarter: 2013Q4

REPORT INFORMATION
  Report Type: Spontaneous
  Country: US (occurrence: US)
  Receive Date: 20131003
  Receipt Date: 20131003
  Transmission Date: 20140711
  Serious: No
  Sender: FDA-Public Use
  Company Number: US-AMGEN-USASP2012074796

PATIENT
  Age: 61 Year
  Sex: Female
  Weight: 55 kg

DRUGS (10)
  1. ENBREL [Suspect]
     Indication: RHEUMATOID ARTHRITIS
     Dosage: 50 MG, QWK
     Route: 058
  2. LEFLUNOMID [Concomitant]
     Dosage: 10 MG, UNK
     Route: 048
  3. PRAVASTATIN [Concomitant]
     Dosage: 10 MG, UNK
     Route: 048
  4. SYMBICORT [Concomitant]
     Dosage: 160-4.5 IN
  5. DICLOFENAC [Concomitant]
     Dosage: 75 MG, UNK
     Route: 048
  6. ACETAMINOPHEN [Concomitant]
     Dosage: 500 MG, UNK
     Route: 048
  7. LEVOTHYROXIN [Concomitant]
     Dosage: 137 MUG, UNK
     Route: 048
  8. OSCAL                              /00514701/ [Concomitant]
     Dosage: 500 PER TAB
  9. VITAMIN D                          /00107901/ [Concomitant]
     Dosage: 1000 UNIT, UNK
     Route: 048
  10. D3 [Concomitant]
     Dosage: 200 UNK, UNK
     Route: 048

REACTIONS (3)
  - Injection site reaction [Unknown]
  - Injection site erythema [Unknown]
  - Injection site pruritus [Unknown]
